FAERS Safety Report 23493214 (Version 1)
Quarter: 2024Q1

REPORT INFORMATION
  Report Type: Spontaneous
  Country: US (occurrence: None)
  Receive Date: 20240206
  Receipt Date: 20240206
  Transmission Date: 20240410
  Serious: Yes (Hospitalization)
  Sender: FDA-Public Use
  Company Number: None

PATIENT
  Age: 21 Year
  Sex: Female

DRUGS (2)
  1. DEFERASIROX [Suspect]
     Active Substance: DEFERASIROX
     Indication: Sickle cell anaemia with crisis
     Dosage: FREQUENCY : DAILY;?
     Route: 048
     Dates: start: 202002
  2. ENDARI [Concomitant]
     Active Substance: GLUTAMINE

REACTIONS (3)
  - Sickle cell anaemia with crisis [None]
  - Intentional dose omission [None]
  - Memory impairment [None]

NARRATIVE: CASE EVENT DATE: 20240101
